FAERS Safety Report 19130237 (Version 1)
Quarter: 2021Q2

REPORT INFORMATION
  Report Type: Spontaneous
  Country: US (occurrence: US)
  Receive Date: 20210414
  Receipt Date: 20210414
  Transmission Date: 20210717
  Serious: No
  Sender: FDA-Public Use
  Company Number: US-ASTRAZENECA-2021A162957

PATIENT
  Sex: Female

DRUGS (2)
  1. FARXIGA [Suspect]
     Active Substance: DAPAGLIFLOZIN PROPANEDIOL
     Indication: DIABETES MELLITUS
     Dosage: UNKNOWN
     Route: 048
     Dates: start: 20210308
  2. FARXIGA [Suspect]
     Active Substance: DAPAGLIFLOZIN PROPANEDIOL
     Indication: DIABETES MELLITUS
     Dosage: UNKNOWN
     Route: 048

REACTIONS (6)
  - Muscle spasms [Unknown]
  - Somnolence [Unknown]
  - Abdominal distension [Unknown]
  - Dyspepsia [Not Recovered/Not Resolved]
  - Pollakiuria [Unknown]
  - Fatigue [Unknown]
